FAERS Safety Report 9701665 (Version 1)
Quarter: 2013Q4

REPORT INFORMATION
  Report Type: Spontaneous
  Country: US (occurrence: US)
  Receive Date: 20131119
  Receipt Date: 20131119
  Transmission Date: 20140711
  Serious: Yes (Other)
  Sender: FDA-Public Use
  Company Number: US-ORACLE-2012S1000010

PATIENT
  Age: 45 Year
  Sex: Male
  Weight: 84.37 kg

DRUGS (19)
  1. KRYSTEXXA INJECTION [Suspect]
     Indication: GOUT
     Route: 042
     Dates: start: 20120210, end: 20120210
  2. KRYSTEXXA INJECTION [Suspect]
     Indication: RENAL IMPAIRMENT
     Route: 042
     Dates: start: 20120210, end: 20120210
  3. KRYSTEXXA INJECTION [Suspect]
     Indication: GOUT
     Route: 042
     Dates: start: 20120127, end: 20120127
  4. KRYSTEXXA INJECTION [Suspect]
     Indication: RENAL IMPAIRMENT
     Route: 042
     Dates: start: 20120127, end: 20120127
  5. KRYSTEXXA INJECTION [Suspect]
     Indication: GOUT
     Route: 042
     Dates: start: 20120104, end: 20120104
  6. KRYSTEXXA INJECTION [Suspect]
     Indication: RENAL IMPAIRMENT
     Route: 042
     Dates: start: 20120104, end: 20120104
  7. PREDNISONE [Concomitant]
     Indication: GOUT
     Dates: start: 20120104
  8. LIPITOR [Concomitant]
     Indication: BLOOD CHOLESTEROL INCREASED
     Dates: start: 201108
  9. ATENOLOL [Concomitant]
     Indication: PULMONARY HYPERTENSION
     Dates: start: 2006
  10. AMLODIPINE [Concomitant]
     Indication: PULMONARY HYPERTENSION
     Dates: start: 2009
  11. AMLODIPINE [Concomitant]
     Indication: PULMONARY HYPERTENSION
     Dates: start: 2008, end: 2009
  12. LISINOPRIL [Concomitant]
     Indication: PULMONARY HYPERTENSION
     Dates: start: 201007
  13. LISINOPRIL [Concomitant]
     Indication: PROTEINURIA
     Dates: start: 201007
  14. GLYBURIDE [Concomitant]
     Indication: DIABETES MELLITUS
     Dates: start: 200904
  15. CLONIDINE [Concomitant]
     Indication: PULMONARY HYPERTENSION
     Dates: start: 200904
  16. BENADRYL /00945501/ [Concomitant]
     Indication: PREMEDICATION
     Dates: start: 20120210, end: 20120210
  17. SOLUMEDROL [Concomitant]
     Indication: PREMEDICATION
     Dates: start: 20120210, end: 20120210
  18. TYLENOL /00724201/ [Concomitant]
     Indication: PREMEDICATION
     Dates: start: 20120210, end: 20120210
  19. ALLOPURINOL [Concomitant]
     Indication: GOUT

REACTIONS (1)
  - Anaphylactic shock [Recovering/Resolving]
